FAERS Safety Report 9442142 (Version 1)
Quarter: 2013Q3

REPORT INFORMATION
  Report Type: Spontaneous
  Country: FR (occurrence: FR)
  Receive Date: 20130806
  Receipt Date: 20130806
  Transmission Date: 20140515
  Serious: Yes (Other)
  Sender: FDA-Public Use
  Company Number: PHHY2013FR083769

PATIENT
  Age: 68 Year
  Sex: Female

DRUGS (2)
  1. GLIVEC [Suspect]
     Indication: ACUTE MYELOID LEUKAEMIA
     Dosage: UNK UKN, UNK
     Dates: start: 200901, end: 201303
  2. FORLAX [Concomitant]
     Indication: CONSTIPATION
     Dosage: UNK UKN, PRN
     Route: 048

REACTIONS (1)
  - Extrapyramidal disorder [Not Recovered/Not Resolved]
